FAERS Safety Report 13363394 (Version 2)
Quarter: 2017Q1

REPORT INFORMATION
  Report Type: Spontaneous
  Country: US (occurrence: US)
  Receive Date: 20170323
  Receipt Date: 20170329
  Transmission Date: 20170429
  Serious: Yes (Death)
  Sender: FDA-Public Use
  Company Number: US-PFIZER INC-2017121187

PATIENT
  Age: 27 Year
  Sex: Female

DRUGS (7)
  1. TYLENOL WITH CODEINE [Concomitant]
     Active Substance: ACETAMINOPHEN\CODEINE PHOSPHATE
     Indication: PAIN
     Dosage: UNK
  2. MISOPROSTOL. [Suspect]
     Active Substance: MISOPROSTOL
     Indication: ABORTION INDUCED
     Dosage: 800 UG, 1X/DAY
     Route: 002
     Dates: start: 20100324, end: 20100324
  3. DRAMAMINE [Concomitant]
     Active Substance: DIMENHYDRINATE
     Indication: NAUSEA
     Dosage: UNK
  4. IBUPROFEN. [Concomitant]
     Active Substance: IBUPROFEN
     Indication: PAIN
     Dosage: UNK, 4X/DAY, (600-800 MG ORALLY WITH FOOD EVERY SIX HOURS)
     Route: 048
  5. ZITHROMAX [Concomitant]
     Active Substance: AZITHROMYCIN DIHYDRATE
     Dosage: 1 G, UNK, (PACKET)
     Route: 048
  6. SUPRAX [Concomitant]
     Active Substance: CEFIXIME
     Indication: SINUSITIS
     Dosage: UNK
  7. MIFEPREX [Suspect]
     Active Substance: MIFEPRISTONE
     Indication: ABORTION INDUCED
     Dosage: 200 MG, 1X/DAY
     Route: 065
     Dates: start: 20100323, end: 20100323

REACTIONS (2)
  - Product use issue [Fatal]
  - Ruptured ectopic pregnancy [Fatal]

NARRATIVE: CASE EVENT DATE: 201003
